FAERS Safety Report 6306453-6 (Version None)
Quarter: 2009Q3

REPORT INFORMATION
  Report Type: 
  Country: None (occurrence: None)
  Receive Date: 20090812
  Receipt Date: 20090804
  Transmission Date: 20100115
  Serious: Yes (Other)
  Sender: FDA-Public Use
  Company Number: ZA-ABBOTT-09P-143-0500744-00

PATIENT
  Sex: Male
  Weight: 85 kg

DRUGS (9)
  1. HUMIRA [Suspect]
     Indication: ANKYLOSING SPONDYLITIS
     Route: 058
     Dates: start: 20081127
  2. PREDNISONE [Suspect]
     Indication: ANKYLOSING SPONDYLITIS
     Route: 048
  3. METHOTREXATE [Suspect]
     Indication: ANKYLOSING SPONDYLITIS
     Dosage: 20 MG PER WEEK
     Route: 048
  4. MELOXICAM [Concomitant]
     Indication: ANKYLOSING SPONDYLITIS
     Route: 048
  5. TRAMADOL [Concomitant]
     Indication: ANKYLOSING SPONDYLITIS
     Route: 048
  6. FOLIC ACID [Concomitant]
     Indication: ANKYLOSING SPONDYLITIS
     Route: 048
  7. OMEPRAZOLE [Concomitant]
     Indication: ANKYLOSING SPONDYLITIS
     Route: 048
  8. PREDNISONE [Concomitant]
     Route: 048
  9. METHOTREXATE [Concomitant]
     Route: 048

REACTIONS (1)
  - RASH PUSTULAR [None]
